FAERS Safety Report 7447091-1 (Version None)
Quarter: 2011Q2

REPORT INFORMATION
  Report Type: 
  Country: None (occurrence: None)
  Receive Date: 20110429
  Receipt Date: 20110425
  Transmission Date: 20111010
  Serious: Yes (Hospitalization)
  Sender: FDA-Public Use
  Company Number: JP-ROCHE-709322

PATIENT
  Sex: Female
  Weight: 40 kg

DRUGS (54)
  1. TOCILIZUMAB [Suspect]
     Route: 041
     Dates: start: 20100716, end: 20100716
  2. PREDNISOLONE [Suspect]
     Route: 048
     Dates: start: 20090827, end: 20090923
  3. PREDNISOLONE [Suspect]
     Route: 048
     Dates: start: 20100627, end: 20100629
  4. DEXAMETHASONE PALMITATE [Suspect]
     Route: 041
     Dates: start: 20100608, end: 20100610
  5. NEORAL [Suspect]
     Dosage: FORM: PER ORAL AGENT
     Route: 048
     Dates: start: 20091211, end: 20100107
  6. NEORAL [Suspect]
     Dosage: FORM: PER ORAL AGENT
     Route: 048
     Dates: start: 20100305, end: 20100401
  7. NEORAL [Suspect]
     Dosage: FORM: PER ORAL AGENT
     Route: 048
     Dates: start: 20100531, end: 20100601
  8. SOLU-MEDROL [Suspect]
     Route: 041
     Dates: start: 20100624, end: 20100626
  9. PREDNISOLONE [Suspect]
     Route: 048
     Dates: start: 20090730, end: 20090826
  10. DEXAMETHASONE PALMITATE [Suspect]
     Route: 041
     Dates: start: 20100603, end: 20100604
  11. PREDNISOLONE [Suspect]
     Dosage: STOP DATE: JULY 2010
     Route: 048
     Dates: start: 20100723
  12. PREDNISOLONE [Suspect]
     Route: 048
     Dates: start: 20100731
  13. DEXAMETHASONE PALMITATE [Suspect]
     Route: 041
     Dates: start: 20100718, end: 20100720
  14. NEORAL [Suspect]
     Dosage: FORM: PER ORAL AGENT
     Route: 048
     Dates: start: 20100430, end: 20100530
  15. BEZATOL SR [Concomitant]
     Dosage: FORM: SUSTAINED RELEASE TABLET
     Route: 048
     Dates: end: 20100602
  16. PREDNISOLONE [Suspect]
     Route: 048
     Dates: start: 20090702, end: 20090729
  17. DEXAMETHASONE PALMITATE [Suspect]
     Route: 041
     Dates: start: 20100721, end: 20100722
  18. SANDIMMUNE [Suspect]
     Route: 041
     Dates: start: 20100614, end: 20100617
  19. SANDIMMUNE [Suspect]
     Route: 041
     Dates: start: 20100628, end: 20100629
  20. NEORAL [Suspect]
     Dosage: FORM: PER ORAL AGENT
     Route: 048
     Dates: start: 20100205, end: 20100304
  21. NEORAL [Suspect]
     Route: 048
     Dates: start: 20100619, end: 20100628
  22. SOLU-MEDROL [Suspect]
     Indication: JUVENILE ARTHRITIS
     Route: 041
     Dates: start: 20100614, end: 20100616
  23. BEZATOL SR [Concomitant]
     Dosage: FORM: SUSTAINED RELEASE TABLET
     Route: 048
     Dates: start: 20100607, end: 20100629
  24. GLAKAY [Concomitant]
     Route: 048
     Dates: end: 20100602
  25. TRYPTANOL [Concomitant]
     Dosage: DOSE FORM: PERORAL AGENT
     Route: 048
     Dates: start: 20090827, end: 20090928
  26. TOCILIZUMAB [Suspect]
     Indication: JUVENILE ARTHRITIS
     Route: 041
     Dates: start: 20090818, end: 20100610
  27. PREDNISOLONE [Suspect]
     Indication: JUVENILE ARTHRITIS
     Route: 048
     Dates: start: 20090512, end: 20090608
  28. DEXAMETHASONE PALMITATE [Suspect]
     Dosage: STOP DATE: JUNE 2010. DOSAGE IS UNCERTAIN
     Route: 041
     Dates: start: 20100629
  29. SANDIMMUNE [Suspect]
     Route: 041
     Dates: start: 20100618, end: 20100619
  30. NEORAL [Suspect]
     Dosage: FORM: PER ORAL AGENT
     Route: 048
     Dates: start: 20100108, end: 20100204
  31. BIOFERMIN [Concomitant]
     Indication: PROPHYLAXIS
     Dosage: FORM:PERORAL AGENT
     Route: 048
     Dates: end: 20090826
  32. BIOFERMIN [Concomitant]
     Route: 048
     Dates: start: 20090827, end: 20090928
  33. PREDNISOLONE [Suspect]
     Route: 048
     Dates: start: 20090924, end: 20100602
  34. PREDNISOLONE [Suspect]
     Route: 048
     Dates: start: 20100617, end: 20100623
  35. SANDIMMUNE [Suspect]
     Route: 041
     Dates: start: 20100617, end: 20100618
  36. NEORAL [Suspect]
     Route: 048
     Dates: start: 20100605, end: 20100614
  37. PREDNISOLONE [Suspect]
     Route: 048
     Dates: start: 20090609, end: 20090701
  38. DEXAMETHASONE PALMITATE [Suspect]
     Indication: JUVENILE ARTHRITIS
     Route: 041
     Dates: start: 20100602, end: 20100602
  39. DEXAMETHASONE PALMITATE [Suspect]
     Route: 041
     Dates: start: 20100726, end: 20100731
  40. NEORAL [Suspect]
     Dosage: FORM: PER ORAL AGENT
     Route: 048
     Dates: start: 20100402, end: 20100429
  41. GLAKAY [Concomitant]
     Route: 048
     Dates: start: 20100607, end: 20100629
  42. ULCERLMIN [Concomitant]
     Indication: PROPHYLAXIS
     Route: 048
     Dates: end: 20090826
  43. ULCERLMIN [Concomitant]
     Route: 048
     Dates: start: 20090827, end: 20090928
  44. TRYPTANOL [Concomitant]
     Route: 048
     Dates: end: 20090826
  45. FAMOTIDINE [Concomitant]
     Dosage: DOSE FORM: PERORAL AGENT
     Route: 048
     Dates: start: 20100602, end: 20100629
  46. DEXAMETHASONE PALMITATE [Suspect]
     Route: 041
     Dates: start: 20100605, end: 20100605
  47. DEXAMETHASONE PALMITATE [Suspect]
     Route: 041
     Dates: start: 20100606, end: 20100607
  48. SANDIMMUNE [Suspect]
     Indication: JUVENILE ARTHRITIS
     Route: 041
     Dates: start: 20100602, end: 20100605
  49. SANDIMMUNE [Suspect]
     Route: 041
     Dates: start: 20100718
  50. NEORAL [Suspect]
     Indication: JUVENILE ARTHRITIS
     Dosage: FORM: PER ORAL AGENT
     Route: 048
     Dates: end: 20091112
  51. NEORAL [Suspect]
     Dosage: FORM: PER ORAL AGENT
     Route: 048
     Dates: start: 20091113, end: 20091210
  52. NEORAL [Suspect]
     Dosage: FORM: PER ORAL AGENT
     Route: 048
     Dates: start: 20100602, end: 20100602
  53. BIOFERMIN [Concomitant]
     Route: 048
     Dates: start: 20100617, end: 20100629
  54. SELBEX [Concomitant]
     Route: 048
     Dates: start: 20100617, end: 20100629

REACTIONS (2)
  - SEPSIS [None]
  - HISTIOCYTOSIS HAEMATOPHAGIC [None]
